FAERS Safety Report 4890430-6 (Version None)
Quarter: 2005Q4

REPORT INFORMATION
  Report Type: 
  Country: None (occurrence: None)
  Receive Date: 20051216
  Receipt Date: 20051012
  Transmission Date: 20060501
  Serious: Yes (Other)
  Sender: FDA-Public Use
  Company Number: BDI-007641

PATIENT
  Age: 60 Year
  Sex: Female

DRUGS (2)
  1. MULTIHANCE [Suspect]
     Indication: ANGIOGRAM PERIPHERAL
     Dosage: 60 ML ONCE IV
     Route: 042
     Dates: start: 20051010, end: 20051010
  2. MULTIHANCE [Suspect]
     Indication: INTERMITTENT CLAUDICATION
     Dosage: 60 ML ONCE IV
     Route: 042
     Dates: start: 20051010, end: 20051010

REACTIONS (3)
  - CYANOSIS [None]
  - DYSPNOEA [None]
  - URTICARIA [None]
